FAERS Safety Report 7675490-1 (Version None)
Quarter: 2011Q3

REPORT INFORMATION
  Report Type: 
  Country: None (occurrence: None)
  Receive Date: 20110810
  Receipt Date: 20110801
  Transmission Date: 20111222
  Serious: Yes (Hospitalization, Other)
  Sender: FDA-Public Use
  Company Number: FR-ABBOTT-11P-056-0843183-00

PATIENT
  Sex: Male

DRUGS (1)
  1. HUMIRA [Suspect]
     Indication: ANKYLOSING SPONDYLITIS
     Dates: start: 20090201, end: 20090901

REACTIONS (16)
  - CUTANEOUS VASCULITIS [None]
  - NAUSEA [None]
  - MALAISE [None]
  - ASTHENIA [None]
  - COLD SWEAT [None]
  - PYREXIA [None]
  - WEIGHT DECREASED [None]
  - COLITIS [None]
  - VOMITING [None]
  - SCRATCH [None]
  - ABDOMINAL PAIN [None]
  - VASCULITIS GASTROINTESTINAL [None]
  - DECREASED APPETITE [None]
  - PAIN [None]
  - ACUTE ABDOMEN [None]
  - PURPURA [None]
